FAERS Safety Report 11235387 (Version 3)
Quarter: 2015Q4

REPORT INFORMATION
  Report Type: Spontaneous
  Country: US (occurrence: US)
  Receive Date: 20150702
  Receipt Date: 20151210
  Transmission Date: 20160304
  Serious: Yes (Death)
  Sender: FDA-Public Use
  Company Number: US-JNJFOC-20150623860

PATIENT
  Sex: Male

DRUGS (9)
  1. MILK OF MAGNESIA [Concomitant]
     Active Substance: MAGNESIUM HYDROXIDE
  2. LASIX [Concomitant]
     Active Substance: FUROSEMIDE
  3. DIOVAN [Concomitant]
     Active Substance: VALSARTAN
  4. ATIVAN [Concomitant]
     Active Substance: LORAZEPAM
  5. BENEFIBER [Concomitant]
     Active Substance: STARCH, WHEAT
  6. IMBRUVICA [Suspect]
     Active Substance: IBRUTINIB
     Indication: CHRONIC LYMPHOCYTIC LEUKAEMIA
     Dosage: (THREE CAPSULES)
     Route: 048
     Dates: start: 20140816
  7. POTASSIUM [Concomitant]
     Active Substance: POTASSIUM
  8. NITROSTAT [Concomitant]
     Active Substance: NITROGLYCERIN
  9. CLONIDINE. [Concomitant]
     Active Substance: CLONIDINE

REACTIONS (1)
  - Disease progression [Fatal]
